FAERS Safety Report 16707010 (Version 1)
Quarter: 2019Q3

REPORT INFORMATION
  Report Type: Spontaneous
  Country: US (occurrence: US)
  Receive Date: 20190628
  Receipt Date: 20190628
  Transmission Date: 20191004
  Serious: Yes (Hospitalization, Other)
  Sender: FDA-Public Use
  Company Number: None

PATIENT
  Age: 69 Year
  Sex: Male

DRUGS (18)
  1. TYVASO [Concomitant]
     Active Substance: TREPROSTINIL
  2. ATORVASTATIN [Concomitant]
     Active Substance: ATORVASTATIN
  3. TRAZODONE [Concomitant]
     Active Substance: TRAZODONE HYDROCHLORIDE
  4. ASPIRIN. [Concomitant]
     Active Substance: ASPIRIN
  5. OPSUMIT [Suspect]
     Active Substance: MACITENTAN
     Indication: HEART DISEASE CONGENITAL
     Route: 048
     Dates: start: 201606
  6. SILDENAFIL. [Concomitant]
     Active Substance: SILDENAFIL
  7. TORSEMIDE. [Concomitant]
     Active Substance: TORSEMIDE
  8. FAMOTIDINE. [Concomitant]
     Active Substance: FAMOTIDINE
  9. ALBUTEROL HFA [Concomitant]
     Active Substance: ALBUTEROL SULFATE
  10. OPSUMIT [Suspect]
     Active Substance: MACITENTAN
     Indication: CONNECTIVE TISSUE DISORDER
     Route: 048
     Dates: start: 201606
  11. EPLERENONE. [Concomitant]
     Active Substance: EPLERENONE
  12. NORCO [Concomitant]
     Active Substance: ACETAMINOPHEN\HYDROCODONE BITARTRATE
  13. OPSUMIT [Suspect]
     Active Substance: MACITENTAN
     Indication: PULMONARY ARTERIAL HYPERTENSION
     Route: 048
     Dates: start: 201606
  14. APIXABAN [Concomitant]
     Active Substance: APIXABAN
  15. GABAPENTIN. [Concomitant]
     Active Substance: GABAPENTIN
  16. ALLOPURINOL. [Concomitant]
     Active Substance: ALLOPURINOL
  17. AMIODARONE [Concomitant]
     Active Substance: AMIODARONE
  18. NARCAN [Concomitant]
     Active Substance: NALOXONE HYDROCHLORIDE

REACTIONS (5)
  - Corneal disorder [None]
  - Eye pain [None]
  - Peripheral swelling [None]
  - Cardiac failure congestive [None]
  - Ocular hyperaemia [None]

NARRATIVE: CASE EVENT DATE: 20190531
